FAERS Safety Report 13128697 (Version 11)
Quarter: 2018Q1

REPORT INFORMATION
  Report Type: Spontaneous
  Country: CA (occurrence: CA)
  Receive Date: 20170119
  Receipt Date: 20180302
  Transmission Date: 20180508
  Serious: Yes (Hospitalization, Other)
  Sender: FDA-Public Use
  Company Number: CA-ROCHE-1881532

PATIENT
  Age: 72 Year
  Sex: Male

DRUGS (3)
  1. METHOTREXATE. [Suspect]
     Active Substance: METHOTREXATE
     Indication: PRODUCT USED FOR UNKNOWN INDICATION
     Route: 065
  2. PREDNISONE. [Suspect]
     Active Substance: PREDNISONE
     Indication: PRODUCT USED FOR UNKNOWN INDICATION
     Route: 065
  3. ACTEMRA [Suspect]
     Active Substance: TOCILIZUMAB
     Indication: STILL^S DISEASE
     Dosage: 400 MG/20 ML
     Route: 042
     Dates: start: 20160623

REACTIONS (30)
  - Portal vein thrombosis [Not Recovered/Not Resolved]
  - Fall [Unknown]
  - Dyspnoea [Not Recovered/Not Resolved]
  - Neck pain [Unknown]
  - Eye swelling [Unknown]
  - Nodule [Not Recovered/Not Resolved]
  - Blood glucose decreased [Not Recovered/Not Resolved]
  - Peripheral swelling [Not Recovered/Not Resolved]
  - Eye pain [Not Recovered/Not Resolved]
  - Pain in extremity [Not Recovered/Not Resolved]
  - Arthralgia [Not Recovered/Not Resolved]
  - Mass [Not Recovered/Not Resolved]
  - Haematoma [Unknown]
  - Headache [Unknown]
  - Lethargy [Recovered/Resolved]
  - Cold sweat [Not Recovered/Not Resolved]
  - Drug withdrawal syndrome [Not Recovered/Not Resolved]
  - Musculoskeletal pain [Unknown]
  - Pericarditis [Unknown]
  - Dizziness [Unknown]
  - Lethargy [Not Recovered/Not Resolved]
  - Chest pain [Not Recovered/Not Resolved]
  - Abdominal pain [Not Recovered/Not Resolved]
  - Asthenia [Not Recovered/Not Resolved]
  - Joint swelling [Recovered/Resolved]
  - Tremor [Not Recovered/Not Resolved]
  - Infection [Unknown]
  - Skin abrasion [Unknown]
  - Somnolence [Not Recovered/Not Resolved]
  - Pain in extremity [Recovered/Resolved]

NARRATIVE: CASE EVENT DATE: 20170521
